FAERS Safety Report 11941040 (Version 3)
Quarter: 2016Q1

REPORT INFORMATION
  Report Type: Report from Study
  Country: US (occurrence: US)
  Receive Date: 20160122
  Receipt Date: 20160210
  Transmission Date: 20160526
  Serious: Yes (Hospitalization)
  Sender: FDA-Public Use
  Company Number: US-BIOGEN-2016BI00176533

PATIENT
  Age: 54 Year
  Sex: Female

DRUGS (5)
  1. NEXIUM [Concomitant]
     Active Substance: ESOMEPRAZOLE MAGNESIUM
     Indication: PRODUCT USED FOR UNKNOWN INDICATION
     Route: 065
  2. TRAMADOL HCL ER [Concomitant]
     Indication: PRODUCT USED FOR UNKNOWN INDICATION
     Route: 065
  3. NAPROXEN. [Concomitant]
     Active Substance: NAPROXEN
     Indication: PRODUCT USED FOR UNKNOWN INDICATION
     Route: 065
  4. ZYRTEC [Concomitant]
     Active Substance: CETIRIZINE HYDROCHLORIDE
     Indication: PRODUCT USED FOR UNKNOWN INDICATION
     Route: 065
  5. TECFIDERA [Suspect]
     Active Substance: DIMETHYL FUMARATE
     Indication: MULTIPLE SCLEROSIS
     Dosage: MAINTENANCE DOSE
     Route: 048
     Dates: start: 2015

REACTIONS (32)
  - Hypotension [Unknown]
  - Ligament rupture [Unknown]
  - Ear haemorrhage [Unknown]
  - Blood pressure increased [Unknown]
  - Pharyngeal abscess [Unknown]
  - Musculoskeletal stiffness [Unknown]
  - Arthralgia [Unknown]
  - Neck pain [Unknown]
  - Abasia [Unknown]
  - Drug prescribing error [Unknown]
  - Malnutrition [Unknown]
  - Loss of consciousness [Recovered/Resolved]
  - Multiple sclerosis relapse [Unknown]
  - Haemoptysis [Unknown]
  - Dehydration [Unknown]
  - Dysphonia [Unknown]
  - Tongue movement disturbance [Unknown]
  - Burning sensation [Unknown]
  - Sensation of foreign body [Not Recovered/Not Resolved]
  - Fall [Recovered/Resolved]
  - Dyspnoea [Unknown]
  - Urinary retention [Unknown]
  - Mass [Unknown]
  - Mobility decreased [Unknown]
  - Pain [Unknown]
  - Spinal disorder [Unknown]
  - Constipation [Unknown]
  - Urinary bladder haemorrhage [Unknown]
  - Mucous membrane disorder [Unknown]
  - Angina pectoris [Unknown]
  - Fracture [Unknown]
  - Accident [Unknown]

NARRATIVE: CASE EVENT DATE: 2015
